FAERS Safety Report 15633695 (Version 4)
Quarter: 2019Q4

REPORT INFORMATION
  Report Type: Report from Study
  Country: US (occurrence: US)
  Receive Date: 20181119
  Receipt Date: 20191004
  Transmission Date: 20200122
  Serious: Yes (Hospitalization, Other)
  Sender: FDA-Public Use
  Company Number: US-SA-2018SA315877

PATIENT
  Age: 66 Year
  Sex: Female

DRUGS (5)
  1. NOVOLOG [Suspect]
     Active Substance: INSULIN ASPART
  2. INSULIN LISPRO [Suspect]
     Active Substance: INSULIN LISPRO
  3. INSULIN GLARGINE [Suspect]
     Active Substance: INSULIN GLARGINE
     Dosage: 43 U, QD
  4. INSULIN GLARGINE [Suspect]
     Active Substance: INSULIN GLARGINE
  5. INSULIN GLARGINE [Suspect]
     Active Substance: INSULIN GLARGINE
     Indication: DIABETES MELLITUS
     Dosage: 84 U, QD
     Dates: start: 2000

REACTIONS (9)
  - Walking aid user [Not Recovered/Not Resolved]
  - Cholelithiasis [Recovered/Resolved]
  - Hepatitis B [Recovered/Resolved]
  - Injection site indentation [Unknown]
  - Injection site bruising [Not Recovered/Not Resolved]
  - Drug hypersensitivity [Recovered/Resolved]
  - Drug ineffective [Unknown]
  - Pancreatitis [Recovered/Resolved]
  - Haemorrhage [Unknown]

NARRATIVE: CASE EVENT DATE: 201411
